FAERS Safety Report 7219443-6 (Version None)
Quarter: 2011Q1

REPORT INFORMATION
  Report Type: 
  Country: None (occurrence: None)
  Receive Date: 20110111
  Receipt Date: 20110106
  Transmission Date: 20110831
  Serious: Yes (Hospitalization, Other)
  Sender: FDA-Public Use
  Company Number: US-SANOFI-AVENTIS-2010SA071377

PATIENT
  Age: 83 Year
  Sex: Male
  Weight: 77 kg

DRUGS (13)
  1. INVESTIGATIONAL DRUG [Suspect]
     Route: 042
     Dates: start: 20101004, end: 20101004
  2. SIMVASTATIN [Concomitant]
     Dates: start: 20100901
  3. DOCETAXEL [Suspect]
     Route: 041
     Dates: start: 20101104, end: 20101104
  4. DEXAMETHASONE [Concomitant]
     Dates: start: 20101101, end: 20101101
  5. DOCETAXEL [Suspect]
     Route: 041
     Dates: start: 20101007, end: 20101007
  6. METOPROLOL SUCCINATE [Concomitant]
  7. INVESTIGATIONAL DRUG [Suspect]
     Route: 042
     Dates: start: 20101101, end: 20101101
  8. ALPRAZOLAM [Concomitant]
     Dates: start: 20100412
  9. NEXIUM [Concomitant]
     Dates: start: 20100412
  10. LORTAB [Concomitant]
     Dates: start: 20101001
  11. HYDROCHLOROTHIAZIDE [Concomitant]
     Dates: start: 20101101
  12. VALSARTAN [Concomitant]
     Dates: start: 20101105
  13. AMOXICILLIN AND CLAVULANATE POTASSIUM [Concomitant]
     Dates: start: 20101105

REACTIONS (4)
  - MENTAL STATUS CHANGES [None]
  - BLOOD CREATINE PHOSPHOKINASE INCREASED [None]
  - RENAL FAILURE [None]
  - NEUTROPENIA [None]
